FAERS Safety Report 9206776 (Version 2)
Quarter: 2013Q2

REPORT INFORMATION
  Report Type: Spontaneous
  Country: US (occurrence: None)
  Receive Date: 20120731
  Receipt Date: 20121101
  Transmission Date: 20140414
  Serious: No
  Sender: FDA-Public Use
  Company Number: 2012MZ000350

PATIENT
  Sex: Female
  Weight: 61.24 kg

DRUGS (1)
  1. XEOMIN [Suspect]
     Indication: TORTICOLLIS

REACTIONS (7)
  - Therapeutic response decreased [None]
  - Ear pain [None]
  - Pain in jaw [None]
  - Anxiety [None]
  - Neck pain [None]
  - Musculoskeletal pain [None]
  - Dysphagia [None]
